FAERS Safety Report 18953413 (Version 1)
Quarter: 2021Q1

REPORT INFORMATION
  Report Type: Spontaneous
  Country: FR (occurrence: FR)
  Receive Date: 20210301
  Receipt Date: 20210301
  Transmission Date: 20210420
  Serious: Yes (Other)
  Sender: FDA-Public Use
  Company Number: FR-LUPIN PHARMACEUTICALS INC.-2021-02434

PATIENT
  Sex: Female

DRUGS (7)
  1. LAMOTRIGINE. [Concomitant]
     Active Substance: LAMOTRIGINE
     Indication: FEBRILE CONVULSION
     Dosage: UNK
     Route: 065
  2. TOPIRAMAT [Suspect]
     Active Substance: TOPIRAMATE
     Indication: FEBRILE CONVULSION
     Dosage: UNK
     Route: 065
  3. CLOBAZAM. [Suspect]
     Active Substance: CLOBAZAM
     Indication: FEBRILE CONVULSION
     Dosage: UNK
     Route: 065
  4. SODIUM VALPROATE [Concomitant]
     Active Substance: VALPROATE SODIUM
     Indication: FEBRILE CONVULSION
     Dosage: UNK
     Route: 065
  5. LEVETIRACETAM. [Concomitant]
     Active Substance: LEVETIRACETAM
     Indication: FEBRILE CONVULSION
     Dosage: UNK
     Route: 065
  6. ZONISAMIDE. [Concomitant]
     Active Substance: ZONISAMIDE
     Indication: FEBRILE CONVULSION
     Dosage: UNK
     Route: 065
  7. PIRACETAM [Concomitant]
     Active Substance: PIRACETAM
     Indication: FEBRILE CONVULSION
     Dosage: UNK
     Route: 065

REACTIONS (6)
  - Apathy [Unknown]
  - Food refusal [Unknown]
  - Decreased interest [Unknown]
  - Sedation [Unknown]
  - High-pitched crying [Unknown]
  - Drug ineffective [Unknown]
